FAERS Safety Report 9259094 (Version 4)
Quarter: 2014Q2

REPORT INFORMATION
  Report Type: Report from Study
  Country: US (occurrence: US)
  Receive Date: 20130426
  Receipt Date: 20140409
  Transmission Date: 20141212
  Serious: Yes (Life-Threatening, Hospitalization)
  Sender: FDA-Public Use
  Company Number: PHHO2013US004637

PATIENT
  Age: 67 Year
  Sex: Female
  Weight: 51.5 kg

DRUGS (20)
  1. LDE 225 [Suspect]
     Indication: BASAL CELL CARCINOMA
     Dosage: DOSE BLINDED
     Route: 048
     Dates: start: 20120316, end: 20130328
  2. GABAPENTIN [Suspect]
  3. ASPIRIN [Suspect]
     Dosage: 81 MG, QD
     Route: 048
  4. BONIVA [Suspect]
     Dosage: 150 MG, MONTHLY
     Route: 048
  5. ALEVE [Concomitant]
     Indication: PAIN
     Dosage: 2 DF, EVERY 12 HOURS AS NEEDED
     Route: 048
  6. AMBIEN [Concomitant]
     Indication: INSOMNIA
     Dosage: 10 MG, PRN
     Route: 048
  7. ANUCORT-HC [Concomitant]
     Indication: PAIN
     Dosage: 25 MG, PRN
     Route: 054
  8. ATIVAN [Concomitant]
     Dosage: 1 MG, QD
     Route: 048
  9. CALTRATE + VITAMIN D [Concomitant]
     Dosage: 600 MG, BID
     Route: 048
  10. CENTRUM SILVER [Concomitant]
     Dosage: 1 DF, QD
     Route: 048
  11. ALAX [Concomitant]
     Dosage: 1 TSP, QD
     Route: 048
  12. HYDROCODONE [Concomitant]
     Dosage: 1 TSP, BID
  13. IPRATROPIUM BROMIDE [Concomitant]
     Dosage: 0.06 %, 3-4 TIMES A DAY
     Route: 055
  14. NEXIUM 1-2-3 [Concomitant]
     Dosage: 1 DF, QD
     Route: 048
  15. ONDANSETRON [Concomitant]
     Dosage: 4 MG, Q4H EVERY 4 HOURS AS  NEEDED
     Route: 048
  16. REFRESH                            /00880201/ [Concomitant]
     Dosage: 1 DRP, QID 4 TIMES A DAY
     Route: 047
  17. RENU [Concomitant]
     Dosage: 1 DRP, AT BED TIME
     Route: 047
  18. G-VITAMIN C [Concomitant]
     Dosage: 1000 MG, BID
     Route: 048
  19. ZOVIRAX [Concomitant]
     Indication: HERPES VIRUS INFECTION
     Dosage: 5 %, PRN
  20. CICLESONIDE [Concomitant]
     Dosage: 37 UG, PRN

REACTIONS (3)
  - Peptic ulcer [Recovering/Resolving]
  - Pyloric stenosis [Recovering/Resolving]
  - Chronic gastritis [Recovering/Resolving]
